FAERS Safety Report 19197456 (Version 1)
Quarter: 2021Q2

REPORT INFORMATION
  Report Type: Spontaneous
  Country: US (occurrence: US)
  Receive Date: 20210430
  Receipt Date: 20210430
  Transmission Date: 20210717
  Serious: No
  Sender: FDA-Public Use
  Company Number: US-AMGEN-USASP2021064667

PATIENT
  Age: 64 Year
  Sex: Female

DRUGS (2)
  1. OTEZLA [Suspect]
     Active Substance: APREMILAST
     Indication: MIGRAINE
  2. OTEZLA [Suspect]
     Active Substance: APREMILAST
     Indication: DYSTONIA
     Dosage: 30 MILLIGRAM, BID
     Route: 048
     Dates: start: 20200923

REACTIONS (3)
  - Infection [Not Recovered/Not Resolved]
  - Off label use [Unknown]
  - Limb injury [Not Recovered/Not Resolved]

NARRATIVE: CASE EVENT DATE: 20200923
